FAERS Safety Report 4432966-8 (Version None)
Quarter: 2004Q3

REPORT INFORMATION
  Report Type: 
  Country: None (occurrence: None)
  Receive Date: 20040823
  Receipt Date: 20040806
  Transmission Date: 20050211
  Serious: No
  Sender: FDA-Public Use
  Company Number: 04P-163-0269662-00

PATIENT
  Age: 48 Year
  Sex: Female

DRUGS (11)
  1. HUMIRA [Suspect]
     Indication: RHEUMATOID ARTHRITIS
     Dosage: 40 MG, 1 IN 2 WK, SUBCUTANEOUS
     Route: 058
     Dates: start: 20030101, end: 20040301
  2. NAPROXEN SODIUM [Concomitant]
  3. CALCIUM [Concomitant]
  4. FOLIC ACID [Concomitant]
  5. LANSOPRAZOLE [Concomitant]
  6. MULTI-VITAMINS [Concomitant]
  7. SUMATRIPTAN SUCCINATE [Concomitant]
  8. OFLOXACIN [Concomitant]
  9. PRED FORTE [Concomitant]
  10. CYPROHEPTADINE HYDROCHLORIDE [Concomitant]
  11. FLUOXETINE [Concomitant]

REACTIONS (2)
  - LYMPHOMA [None]
  - SQUAMOUS CELL CARCINOMA [None]
